FAERS Safety Report 11031312 (Version 1)
Quarter: 2015Q2

REPORT INFORMATION
  Report Type: Spontaneous
  Country: FR (occurrence: None)
  Receive Date: 20150413
  Receipt Date: 20150413
  Transmission Date: 20150821
  Serious: Yes (Hospitalization)
  Sender: FDA-Public Use
  Company Number: PR 7186

PATIENT
  Age: 76 Year
  Sex: Male

DRUGS (8)
  1. COSOPT [Suspect]
     Active Substance: DORZOLAMIDE HYDROCHLORIDE\TIMOLOL MALEATE
     Dates: start: 20141212, end: 20141213
  2. ESOMEPRAZOLE (ESOMEPRAZOLE) [Concomitant]
     Active Substance: ESOMEPRAZOLE
  3. ASPEGIC (ASPIRIN LYSINE) [Concomitant]
  4. TOBRADEX (DEXAMETHASONE, TOBRAMYCIN) [Concomitant]
  5. SYMBICORT [Concomitant]
     Active Substance: BUDESONIDE\FORMOTEROL FUMARATE DIHYDRATE
  6. LASILIX (FUROSEMIDE) [Concomitant]
     Active Substance: FUROSEMIDE
  7. APPROVEL (IRBESARTAN) [Concomitant]
     Active Substance: IRBESARTAN
  8. BRONCHODUAL (FENOTEROL HYDROBROMIDE, IPRATROPIUM BROMIDE) [Concomitant]

REACTIONS (3)
  - Blood pH decreased [None]
  - Acute respiratory failure [None]
  - Bundle branch block [None]
